FAERS Safety Report 12967059 (Version 2)
Quarter: 2016Q4

REPORT INFORMATION
  Report Type: Report from Study
  Country: None (occurrence: BR)
  Receive Date: 20161123
  Receipt Date: 20161214
  Transmission Date: 20170207
  Serious: Yes (Death, Other)
  Sender: FDA-Public Use
  Company Number: BR-ABBVIE-16K-020-1789864-00

PATIENT
  Age: 58 Year
  Sex: Female
  Weight: 73 kg

DRUGS (2)
  1. HUMIRA [Suspect]
     Active Substance: ADALIMUMAB
     Indication: CROHN^S DISEASE
     Route: 058
     Dates: start: 201111
  2. MAXIDRATE [Concomitant]
     Indication: RESPIRATORY DISORDER
     Dosage: SEVERAL TIMES A DAY
     Route: 045
     Dates: start: 2011

REACTIONS (2)
  - Pneumonia [Not Recovered/Not Resolved]
  - Respiratory failure [Fatal]

NARRATIVE: CASE EVENT DATE: 20160502
